FAERS Safety Report 9813855 (Version 2)
Quarter: 2014Q1

REPORT INFORMATION
  Report Type: Spontaneous
  Country: US (occurrence: US)
  Receive Date: 20140113
  Receipt Date: 20140113
  Transmission Date: 20141002
  Serious: No
  Sender: FDA-Public Use
  Company Number: US-GILEAD-2010-0032035

PATIENT
  Age: 44 Year
  Sex: Male

DRUGS (2)
  1. TRUVADA [Suspect]
     Dates: start: 20100907
  2. LYRICA [Concomitant]

REACTIONS (2)
  - Lethargy [Recovered/Resolved]
  - Abnormal dreams [Unknown]
